FAERS Safety Report 10179254 (Version 1)
Quarter: 2014Q2

REPORT INFORMATION
  Report Type: Spontaneous
  Country: US (occurrence: US)
  Receive Date: 20140519
  Receipt Date: 20140519
  Transmission Date: 20141212
  Serious: Yes (Hospitalization)
  Sender: FDA-Public Use
  Company Number: US-ENDO PHARMACEUTICALS INC.-AMLO20140003

PATIENT
  Age: 64 Year
  Sex: Male

DRUGS (1)
  1. AMLODIPINE BESYLATE TABLETS 10MG [Suspect]
     Indication: HYPERTENSION
     Route: 048
     Dates: start: 20130525

REACTIONS (1)
  - Angioedema [Recovered/Resolved]
